FAERS Safety Report 6812136-6 (Version None)
Quarter: 2010Q3

REPORT INFORMATION
  Report Type: 
  Country: None (occurrence: None)
  Receive Date: 20100701
  Receipt Date: 20090803
  Transmission Date: 20110219
  Serious: No
  Sender: FDA-Public Use
  Company Number: US-ABBOTT-09P-163-0589659-00

PATIENT
  Age: 57 Year
  Sex: Male

DRUGS (2)
  1. NORVIR [Suspect]
     Indication: HIV TEST POSITIVE
     Route: 048
     Dates: start: 20060101
  2. LEVITRA [Suspect]
     Indication: ERECTILE DYSFUNCTION
     Route: 048

REACTIONS (1)
  - HEADACHE [None]
